FAERS Safety Report 6447839-9 (Version None)
Quarter: 2009Q4

REPORT INFORMATION
  Report Type: 
  Country: None (occurrence: None)
  Receive Date: 20091120
  Receipt Date: 20091110
  Transmission Date: 20100525
  Serious: Yes (Other)
  Sender: FDA-Public Use
  Company Number: CR-JNJFOC-20091103663

PATIENT
  Age: 58 Year
  Sex: Male

DRUGS (4)
  1. REMICADE [Suspect]
     Route: 042
     Dates: start: 20080101, end: 20091001
  2. REMICADE [Suspect]
     Indication: CROHN'S DISEASE
     Route: 042
     Dates: start: 20080101, end: 20091001
  3. DEFLAZACORT [Concomitant]
  4. MESALAZINE [Concomitant]

REACTIONS (8)
  - ARTHRALGIA [None]
  - BLOOD URINE PRESENT [None]
  - CHEST PAIN [None]
  - INTESTINAL ULCER [None]
  - MALAISE [None]
  - MYALGIA [None]
  - ODYNOPHAGIA [None]
  - PYREXIA [None]
